FAERS Safety Report 17820667 (Version 2)
Quarter: 2020Q2

REPORT INFORMATION
  Report Type: Spontaneous
  Country: AU (occurrence: AU)
  Receive Date: 20200525
  Receipt Date: 20200529
  Transmission Date: 20200714
  Serious: Yes (Hospitalization, Other)
  Sender: FDA-Public Use
  Company Number: AU-ALLERGAN-2019782US

PATIENT
  Sex: Male
  Weight: 56 kg

DRUGS (12)
  1. BOTOX [Suspect]
     Active Substance: ONABOTULINUMTOXINA
     Dosage: 100 UNITS, SINGLE
     Dates: start: 20200331, end: 20200331
  2. BOTOX [Suspect]
     Active Substance: ONABOTULINUMTOXINA
     Indication: MUSCLE SPASTICITY
     Dosage: 100 UNITS, SINGLE
     Dates: start: 20200401, end: 20200401
  3. BOTOX [Suspect]
     Active Substance: ONABOTULINUMTOXINA
     Dosage: 100 UNITS, SINGLE
     Dates: start: 20200331, end: 20200331
  4. GENTAMICIN. [Concomitant]
     Active Substance: GENTAMICIN
     Indication: URINARY TRACT INFECTION BACTERIAL
     Dosage: 160 MG, SINGLE
     Route: 030
     Dates: start: 20200510
  5. BOTOX [Suspect]
     Active Substance: ONABOTULINUMTOXINA
     Dosage: 100 UNITS, SINGLE
     Dates: start: 20200401, end: 20200401
  6. GENTAMICIN. [Concomitant]
     Active Substance: GENTAMICIN
     Dosage: 240 MG, SINGLE
     Route: 030
     Dates: start: 20200509
  7. SOLIFENACIN [Concomitant]
     Active Substance: SOLIFENACIN
     Dosage: 10 MG, QD
  8. PARACETAMOL [Concomitant]
     Active Substance: ACETAMINOPHEN
     Dosage: 1 G, TID
  9. INFLUENZA VACCINE [Concomitant]
     Active Substance: INFLUENZA VIRUS VACCINE
     Dosage: UNK
     Dates: start: 20200402, end: 20200402
  10. SERETIDE [Concomitant]
     Active Substance: FLUTICASONE PROPIONATE\SALMETEROL XINAFOATE
     Dosage: 1 DF, BID
     Route: 065
  11. TIZANIDINE. [Concomitant]
     Active Substance: TIZANIDINE
     Dosage: 6 MG, TID
  12. OXYTROL [Concomitant]
     Active Substance: OXYBUTYNIN
     Dosage: UNK, BI-WEEKLY
     Route: 061

REACTIONS (14)
  - Tachycardia [Unknown]
  - Autonomic dysreflexia [Unknown]
  - Pyrexia [Unknown]
  - Off label use [Unknown]
  - Myositis [Not Recovered/Not Resolved]
  - Blood creatine phosphokinase increased [Not Recovered/Not Resolved]
  - Muscle oedema [Not Recovered/Not Resolved]
  - Product storage error [Unknown]
  - Diarrhoea [Unknown]
  - Vomiting [Unknown]
  - Muscle spasticity [Not Recovered/Not Resolved]
  - Neuralgia [Not Recovered/Not Resolved]
  - Abdominal discomfort [Unknown]
  - Malaise [Not Recovered/Not Resolved]

NARRATIVE: CASE EVENT DATE: 20200510
